FAERS Safety Report 23459377 (Version 2)
Quarter: 2025Q1

REPORT INFORMATION
  Report Type: Spontaneous
  Country: US (occurrence: US)
  Receive Date: 20240131
  Receipt Date: 20250328
  Transmission Date: 20250408
  Serious: Yes (Death, Life-Threatening, Hospitalization)
  Sender: TEVA
  Company Number: US-TEVA-VS-3149376

PATIENT
  Age: 57 Year
  Sex: Male

DRUGS (2)
  1. METHYLPREDNISOLONE [Suspect]
     Active Substance: METHYLPREDNISOLONE
     Indication: Prophylaxis against transplant rejection
     Route: 042
  2. ARGATROBAN [Suspect]
     Active Substance: ARGATROBAN
     Indication: Heparin-induced thrombocytopenia
     Route: 065

REACTIONS (7)
  - Drug ineffective [Fatal]
  - Hepatic infarction [Unknown]
  - Shock haemorrhagic [Unknown]
  - Liver transplant failure [Unknown]
  - Disseminated intravascular coagulation [Unknown]
  - Cardiac arrest [Fatal]
  - Hepatic artery thrombosis [Unknown]
